FAERS Safety Report 19737719 (Version 1)
Quarter: 2021Q3

REPORT INFORMATION
  Report Type: Spontaneous
  Country: JP (occurrence: JP)
  Receive Date: 20210824
  Receipt Date: 20210824
  Transmission Date: 20211014
  Serious: Yes (Hospitalization)
  Sender: FDA-Public Use
  Company Number: JP-TEVA-2021-JP-1944507

PATIENT
  Age: 85 Year
  Sex: Male

DRUGS (8)
  1. PREDNISOLONE. [Suspect]
     Active Substance: PREDNISOLONE
     Dosage: 25 MILLIGRAM DAILY;
     Route: 065
  2. PREDNISOLONE. [Suspect]
     Active Substance: PREDNISOLONE
     Dosage: 20 MILLIGRAM DAILY;
     Route: 065
  3. TROPICAMIDE. [Suspect]
     Active Substance: TROPICAMIDE
     Indication: SCLERITIS
     Route: 061
  4. PREDNISOLONE. [Suspect]
     Active Substance: PREDNISOLONE
     Indication: DEAFNESS NEUROSENSORY
     Dosage: 30 MILLIGRAM DAILY;
     Route: 048
  5. PREDNISOLONE. [Suspect]
     Active Substance: PREDNISOLONE
     Dosage: 10 MILLIGRAM DAILY;
     Route: 065
  6. TROPICAMIDE. [Suspect]
     Active Substance: TROPICAMIDE
     Indication: IRIDOCYCLITIS
  7. BETAMETHASONE. [Suspect]
     Active Substance: BETAMETHASONE
     Indication: IRIDOCYCLITIS
  8. BETAMETHASONE. [Suspect]
     Active Substance: BETAMETHASONE
     Indication: SCLERITIS
     Route: 061

REACTIONS (3)
  - Muscular weakness [Unknown]
  - Gait disturbance [Unknown]
  - Drug ineffective [Unknown]
